FAERS Safety Report 14091114 (Version 1)
Quarter: 2017Q4

REPORT INFORMATION
  Report Type: Spontaneous
  Country: US (occurrence: US)
  Receive Date: 20171016
  Receipt Date: 20171016
  Transmission Date: 20180321
  Serious: No
  Sender: FDA-Public Use
  Company Number: US-ASTRAZENECA-2017SE29489

PATIENT
  Sex: Female

DRUGS (1)
  1. ZOMIG [Suspect]
     Active Substance: ZOLMITRIPTAN
     Indication: MIGRAINE
     Dosage: 5 MG/ 6 SINGLE USE NASAL SPRAY UNITS
     Route: 045
     Dates: start: 2016

REACTIONS (2)
  - Vomiting [Unknown]
  - Product quality issue [Unknown]
